FAERS Safety Report 6453437-3 (Version None)
Quarter: 2009Q4

REPORT INFORMATION
  Report Type: 
  Country: None (occurrence: None)
  Receive Date: 20091124
  Receipt Date: 20091112
  Transmission Date: 20100525
  Serious: Yes (Other)
  Sender: FDA-Public Use
  Company Number: TR-ELI_LILLY_AND_COMPANY-TR200911003321

PATIENT
  Age: 69 Year
  Sex: Male

DRUGS (3)
  1. HUMULIN R [Suspect]
     Dosage: 38 U, 3/D (MORNING, NOON, EVENING)
     Route: 065
     Dates: start: 20070101
  2. HUMULIN N [Suspect]
     Dosage: 40 U, DAILY (1/D) (NIGHT)
     Route: 065
     Dates: start: 20070101
  3. OTHER CARDIAC PREPARATIONS [Concomitant]
     Indication: CARDIAC DISORDER
     Dosage: UNK, 2/D
     Route: 065

REACTIONS (1)
  - VASCULAR GRAFT [None]
